FAERS Safety Report 18907821 (Version 1)
Quarter: 2021Q1

REPORT INFORMATION
  Report Type: Report from Study
  Country: US (occurrence: US)
  Receive Date: 20210218
  Receipt Date: 20210218
  Transmission Date: 20210420
  Serious: Yes (Other)
  Sender: FDA-Public Use
  Company Number: US-BRISTOL-MYERS SQUIBB COMPANY-BMS-2016-052993

PATIENT
  Age: 57 Year
  Sex: Female
  Weight: 60.33 kg

DRUGS (6)
  1. ABATACEPT [Suspect]
     Active Substance: ABATACEPT
     Indication: RHEUMATOID ARTHRITIS
     Dosage: 125 MG/ML, QWK
     Route: 058
  2. NEXIUM I.V. [Concomitant]
     Active Substance: ESOMEPRAZOLE SODIUM
     Indication: PRODUCT USED FOR UNKNOWN INDICATION
     Route: 065
  3. LEVOTHYROXINE. [Concomitant]
     Active Substance: LEVOTHYROXINE
     Indication: THYROID DISORDER
     Route: 065
  4. ABATACEPT [Suspect]
     Active Substance: ABATACEPT
     Indication: RHEUMATOID ARTHRITIS
     Dosage: UNK UNK, QMO
     Route: 042
  5. ABATACEPT [Suspect]
     Active Substance: ABATACEPT
     Indication: RHEUMATOID ARTHRITIS
     Dosage: 125 MG/ML, QWK
     Route: 058
  6. LISINOPRIL. [Concomitant]
     Active Substance: LISINOPRIL
     Indication: BLOOD PRESSURE MEASUREMENT
     Dosage: PILL
     Route: 065

REACTIONS (17)
  - Infection [Unknown]
  - Injection site mass [Unknown]
  - Nausea [Unknown]
  - Biopsy skin [Unknown]
  - Malaise [Unknown]
  - Injection site haemorrhage [Unknown]
  - Sinusitis [Unknown]
  - Injection site bruising [Unknown]
  - Injection site erythema [Unknown]
  - Asthma [Unknown]
  - Pain [Unknown]
  - White blood cell count decreased [Unknown]
  - Uterine disorder [Unknown]
  - Monocyte count decreased [Unknown]
  - Injection site pain [Unknown]
  - Injection site swelling [Unknown]
  - Limb injury [Unknown]

NARRATIVE: CASE EVENT DATE: 20170625
